FAERS Safety Report 23386718 (Version 1)
Quarter: 2024Q1

REPORT INFORMATION
  Report Type: Spontaneous
  Country: US (occurrence: US)
  Receive Date: 20240110
  Receipt Date: 20240110
  Transmission Date: 20240409
  Serious: No
  Sender: FDA-Public Use
  Company Number: US-CATALYST PHARMACEUTICALS, INC-US-CATA-23-00120

PATIENT
  Sex: Male

DRUGS (3)
  1. FIRDAPSE [Suspect]
     Active Substance: AMIFAMPRIDINE PHOSPHATE
     Indication: Myasthenia gravis
     Dosage: 30 MG DAILY
     Route: 048
     Dates: start: 20230210, end: 20230225
  2. FIRDAPSE [Suspect]
     Active Substance: AMIFAMPRIDINE PHOSPHATE
     Dosage: 60 MG DAILY
     Route: 048
     Dates: start: 20230225, end: 2023
  3. FIRDAPSE [Suspect]
     Active Substance: AMIFAMPRIDINE PHOSPHATE
     Dosage: 45 MG
     Route: 048
     Dates: start: 2023, end: 20230307

REACTIONS (3)
  - Paraesthesia oral [Not Recovered/Not Resolved]
  - Muscular weakness [Unknown]
  - Drug ineffective for unapproved indication [Unknown]
